FAERS Safety Report 7605517-4 (Version None)
Quarter: 2011Q3

REPORT INFORMATION
  Report Type: 
  Country: None (occurrence: None)
  Receive Date: 20110713
  Receipt Date: 20110708
  Transmission Date: 20111222
  Serious: No
  Sender: FDA-Public Use
  Company Number: US-PFIZER INC-2011155970

PATIENT
  Sex: Female

DRUGS (2)
  1. GEODON [Suspect]
     Dosage: 80 MG,  DAILY
  2. PROZAC [Suspect]
     Dosage: UNK

REACTIONS (5)
  - INFLUENZA LIKE ILLNESS [None]
  - ASTHENIA [None]
  - WITHDRAWAL SYNDROME [None]
  - NAUSEA [None]
  - DIARRHOEA [None]
